FAERS Safety Report 23226928 (Version 1)
Quarter: 2023Q4

REPORT INFORMATION
  Report Type: Report from Study
  Country: BE (occurrence: None)
  Receive Date: 20231124
  Receipt Date: 20231124
  Transmission Date: 20240110
  Serious: Yes (Life-Threatening, Hospitalization)
  Sender: FDA-Public Use
  Company Number: 2023A231310

PATIENT
  Age: 69 Year
  Sex: Male

DRUGS (21)
  1. CAPIVASERTIB [Suspect]
     Active Substance: CAPIVASERTIB
     Indication: Prostate cancer
     Route: 048
     Dates: start: 20230829, end: 20230901
  2. CAPIVASERTIB [Suspect]
     Active Substance: CAPIVASERTIB
     Indication: Prostate cancer
     Route: 048
     Dates: start: 20230905, end: 20230908
  3. CAPIVASERTIB [Suspect]
     Active Substance: CAPIVASERTIB
     Indication: Prostate cancer
     Route: 048
     Dates: start: 20230912, end: 20230915
  4. CAPIVASERTIB [Suspect]
     Active Substance: CAPIVASERTIB
     Indication: Prostate cancer
     Route: 048
     Dates: start: 20230919, end: 20230922
  5. CAPIVASERTIB [Suspect]
     Active Substance: CAPIVASERTIB
     Indication: Prostate cancer
     Route: 048
     Dates: start: 20230926, end: 20230929
  6. CAPIVASERTIB [Suspect]
     Active Substance: CAPIVASERTIB
     Indication: Prostate cancer
     Route: 048
     Dates: start: 20231003, end: 20231006
  7. DOCETAXEL [Suspect]
     Active Substance: DOCETAXEL\DOCETAXEL ANHYDROUS
     Indication: Prostate cancer
     Dosage: 75.0MG/M2 ONCE/SINGLE ADMINISTRATION
     Route: 042
     Dates: start: 20230828, end: 20230828
  8. DOCETAXEL [Suspect]
     Active Substance: DOCETAXEL\DOCETAXEL ANHYDROUS
     Indication: Prostate cancer
     Dosage: 75.0MG/M2 ONCE/SINGLE ADMINISTRATION
     Route: 042
     Dates: start: 20230918, end: 20230918
  9. CRESTOR [Concomitant]
     Active Substance: ROSUVASTATIN CALCIUM
     Indication: Hypercholesterolaemia
     Route: 048
     Dates: start: 2010
  10. BELSAR [Concomitant]
     Indication: Hypertension
     Route: 048
     Dates: start: 202108
  11. MAGNESIUM B6 PG [Concomitant]
     Indication: Prophylaxis
     Route: 048
     Dates: start: 202105
  12. CHOLECALCIFEROL [Concomitant]
     Active Substance: CHOLECALCIFEROL
     Indication: Prophylaxis
     Route: 048
     Dates: start: 202105
  13. CALCIUM+D3+K [Concomitant]
     Indication: Prophylaxis
     Route: 048
     Dates: start: 202105
  14. LATANOPROST [Concomitant]
     Active Substance: LATANOPROST
     Indication: Vitrectomy
     Route: 031
     Dates: start: 202208
  15. COSOPT [Concomitant]
     Active Substance: DORZOLAMIDE HYDROCHLORIDE\TIMOLOL MALEATE
     Indication: Vitrectomy
     Route: 031
     Dates: start: 202208
  16. XGEVA [Concomitant]
     Active Substance: DENOSUMAB
     Indication: Prophylaxis
     Route: 058
     Dates: start: 20230601
  17. BACTRIM [Concomitant]
     Active Substance: SULFAMETHOXAZOLE\TRIMETHOPRIM
     Indication: Urinary tract infection
     Route: 048
     Dates: start: 20230925, end: 20231006
  18. TRIPTORELIN [Concomitant]
     Active Substance: TRIPTORELIN
     Indication: Prostate cancer
     Route: 058
     Dates: start: 201712
  19. DEXAMETHASONE [Concomitant]
     Active Substance: DEXAMETHASONE
     Indication: Premedication
     Route: 048
     Dates: start: 20230827
  20. PREDNISONE [Concomitant]
     Active Substance: PREDNISONE
     Indication: Therapy cessation
     Route: 048
     Dates: start: 20230828
  21. NEULASTA (PEGFILGRASTM) [Concomitant]
     Indication: Prophylaxis
     Route: 058
     Dates: start: 20230828

REACTIONS (3)
  - Hyperglycaemia [Recovered/Resolved]
  - Intestinal obstruction [Recovered/Resolved]
  - Urinary retention [Recovered/Resolved]

NARRATIVE: CASE EVENT DATE: 20231006
